FAERS Safety Report 6067877-8 (Version None)
Quarter: 2009Q1

REPORT INFORMATION
  Report Type: 
  Country: None (occurrence: None)
  Receive Date: 20090203
  Receipt Date: 20090119
  Transmission Date: 20090719
  Serious: Yes (Death)
  Sender: FDA-Public Use
  Company Number: KV200900109

PATIENT
  Age: 67 Year
  Sex: Male
  Weight: 83.9 kg

DRUGS (5)
  1. ISOSORBIDE MONONITRATE [Suspect]
     Indication: VASCULAR GRAFT
     Dosage: 30 MG, QD, ORAL
     Route: 048
     Dates: end: 20070301
  2. SIMVASTATIN [Concomitant]
  3. PROCARDIA (NIFEDIINE) [Concomitant]
  4. ATENOLOL [Concomitant]
  5. ASPIRIN (ACYTYLSALICYLIC ACID) [Concomitant]

REACTIONS (4)
  - BLOOD PRESSURE DECREASED [None]
  - DIZZINESS [None]
  - PRESYNCOPE [None]
  - PRODUCT QUALITY ISSUE [None]
